FAERS Safety Report 8318933-2 (Version None)
Quarter: 2012Q2

REPORT INFORMATION
  Report Type: 
  Country: None (occurrence: None)
  Receive Date: 20120427
  Receipt Date: 20120419
  Transmission Date: 20120825
  Serious: Yes (Other)
  Sender: FDA-Public Use
  Company Number: CA-JNJFOC-20120409006

PATIENT
  Sex: Female
  Weight: 57 kg

DRUGS (15)
  1. VITAMIN B6 [Concomitant]
     Route: 048
  2. CALCIUM WITH VITAMIN D [Concomitant]
     Route: 048
  3. REMICADE [Suspect]
     Indication: RHEUMATOID ARTHRITIS
     Dates: start: 20081020, end: 20111220
  4. ASPIRIN [Concomitant]
     Route: 048
  5. NOVO-ALENDRONATE [Concomitant]
     Route: 048
  6. APO-FOLIC [Concomitant]
     Route: 048
  7. ALL OTHER THERAPEUTIC PRODUCTS [Concomitant]
  8. METHOTREXATE [Concomitant]
     Dosage: DOSE= 25 MG/ 0.6 ML
     Route: 030
  9. CELEBREX [Concomitant]
     Route: 048
  10. SYNTHROID [Concomitant]
     Route: 048
  11. NEXIUM [Concomitant]
     Route: 048
  12. MIRTAZAPINE [Concomitant]
     Route: 048
  13. RATIO-PAROXETINE [Concomitant]
     Route: 048
  14. LIPITOR [Concomitant]
     Route: 048
  15. ISONIAZID [Concomitant]
     Route: 048

REACTIONS (1)
  - LYMPHOMA [None]
